FAERS Safety Report 5873919-2 (Version None)
Quarter: 2008Q3

REPORT INFORMATION
  Report Type: 
  Country: None (occurrence: None)
  Receive Date: 20080908
  Receipt Date: 20080417
  Transmission Date: 20090109
  Serious: Yes (Life-Threatening, Hospitalization)
  Sender: FDA-Public Use
  Company Number: DE-BAYER-200710004BVD

PATIENT
  Age: 41 Year
  Sex: Male
  Weight: 101 kg

DRUGS (7)
  1. SORAFENIB [Suspect]
     Indication: NON-SMALL CELL LUNG CANCER
     Dosage: TOTAL DAILY DOSE: 800 MG  UNIT DOSE: 200 MG
     Route: 048
     Dates: start: 20061205
  2. PACLITAXEL [Suspect]
     Indication: NON-SMALL CELL LUNG CANCER
     Route: 042
     Dates: start: 20061204
  3. CARBOPLATIN [Suspect]
     Indication: NON-SMALL CELL LUNG CANCER
     Route: 042
     Dates: start: 20061204
  4. DEXAMETHASONE TAB [Concomitant]
     Route: 042
     Dates: start: 20061204, end: 20061204
  5. KEVATRIL [Concomitant]
     Route: 042
     Dates: start: 20061204, end: 20061204
  6. ECURAL [Concomitant]
     Route: 003
  7. POLYHEXANID [Concomitant]
     Route: 003

REACTIONS (1)
  - THROMBOCYTOPENIA [None]
